FAERS Safety Report 25444525 (Version 2)
Quarter: 2025Q2

REPORT INFORMATION
  Report Type: Spontaneous
  Country: US (occurrence: US)
  Receive Date: 20250617
  Receipt Date: 20250624
  Transmission Date: 20250717
  Serious: Yes (Other)
  Sender: ACCORD
  Company Number: US-MLMSERVICE-20250604-PI523222-00218-2

PATIENT
  Age: 40 Year
  Sex: Female

DRUGS (1)
  1. METHOTREXATE [Suspect]
     Active Substance: METHOTREXATE
     Indication: Benign hydatidiform mole
     Dosage: 0.4MG/KG INTRAMUSCULAR DAILY FOR 5 CONSECUTIVE
     Route: 030

REACTIONS (3)
  - Mucosal inflammation [Unknown]
  - Pemphigoid gestationis [Unknown]
  - Off label use [Unknown]
